FAERS Safety Report 17223664 (Version 13)
Quarter: 2020Q2

REPORT INFORMATION
  Report Type: Spontaneous
  Country: CA (occurrence: CA)
  Receive Date: 20200102
  Receipt Date: 20200615
  Transmission Date: 20200713
  Serious: Yes (Other)
  Sender: FDA-Public Use
  Company Number: CA-CELLTRION INC.-2019CA019966

PATIENT

DRUGS (25)
  1. INFLECTRA [Suspect]
     Active Substance: INFLIXIMAB-DYYB
     Dosage: 400 MG, AT 0, 1, 5 WEEKS AND EVERY 6 WEEKS
     Route: 042
     Dates: start: 20190312
  2. INFLECTRA [Suspect]
     Active Substance: INFLIXIMAB-DYYB
     Dosage: 400 MG, AT 0, 1, 5 WEEKS AND EVERY 6 WEEKS
     Route: 042
     Dates: start: 20190522
  3. INFLECTRA [Suspect]
     Active Substance: INFLIXIMAB-DYYB
     Dosage: 400 MG, AT 0, 1, 5 WEEKS AND EVERY 6 WEEKS
     Route: 042
     Dates: start: 20190708
  4. INFLECTRA [Suspect]
     Active Substance: INFLIXIMAB-DYYB
     Dosage: 600 MG, EVERY 4 WEEKS
     Route: 042
     Dates: start: 20200512
  5. MEZAVANT [Concomitant]
     Active Substance: MESALAMINE
     Dosage: 30 MG, UNK
     Route: 065
     Dates: start: 2014
  6. INFLECTRA [Suspect]
     Active Substance: INFLIXIMAB-DYYB
     Dosage: 400 MG, AT 0, 1, 5 WEEKS AND EVERY 6 WEEKS
     Route: 042
     Dates: start: 20191011
  7. INFLECTRA [Suspect]
     Active Substance: INFLIXIMAB-DYYB
     Dosage: 600 MG, EVERY 4 WEEKS
     Route: 042
     Dates: start: 20200206
  8. INFLECTRA [Suspect]
     Active Substance: INFLIXIMAB-DYYB
     Dosage: 600 MG, EVERY 4 WEEKS
     Route: 042
     Dates: start: 20200414
  9. INFLECTRA [Suspect]
     Active Substance: INFLIXIMAB-DYYB
     Dosage: 400 MG, AT 0, 1, 5 WEEKS AND EVERY 6 WEEKS
     Route: 042
     Dates: start: 20191011
  10. INFLECTRA [Suspect]
     Active Substance: INFLIXIMAB-DYYB
     Dosage: 600 MG, EVERY 4 WEEKS
     Route: 042
     Dates: start: 20200608
  11. PREDNISONE. [Concomitant]
     Active Substance: PREDNISONE
     Dosage: 20 MG, UNK (TAPER DOSE)
     Route: 065
     Dates: start: 20190222, end: 2019
  12. INFLECTRA [Suspect]
     Active Substance: INFLIXIMAB-DYYB
     Dosage: 400 MG, AT 0, 1, 5 WEEKS AND EVERY 6 WEEKS
     Route: 042
     Dates: start: 20200104
  13. INFLECTRA [Suspect]
     Active Substance: INFLIXIMAB-DYYB
     Indication: COLITIS ULCERATIVE
     Dosage: 400 MG, AT 0, 1, 5 WEEKS AND EVERY 6 WEEKS
     Route: 042
     Dates: start: 20190304, end: 20200104
  14. INFLECTRA [Suspect]
     Active Substance: INFLIXIMAB-DYYB
     Dosage: 400 MG, AT 0, 1, 5 WEEKS AND EVERY 6 WEEKS
     Route: 042
     Dates: start: 20190410
  15. INFLECTRA [Suspect]
     Active Substance: INFLIXIMAB-DYYB
     Dosage: 600 MG, EVERY 4 WEEKS
     Route: 042
     Dates: start: 20200206
  16. PREDNISONE. [Concomitant]
     Active Substance: PREDNISONE
     Dosage: 30 MG, UNK
     Route: 065
     Dates: start: 201903
  17. VENTOLIN [Concomitant]
     Active Substance: ALBUTEROL SULFATE
     Indication: ASTHMA
     Dosage: UNK, AS NEEDED
     Route: 065
  18. INFLECTRA [Suspect]
     Active Substance: INFLIXIMAB-DYYB
     Dosage: 400 MG, AT 0, 1, 5 WEEKS AND EVERY 6 WEEKS
     Route: 042
     Dates: start: 20200104
  19. INFLECTRA [Suspect]
     Active Substance: INFLIXIMAB-DYYB
     Dosage: 600 MG, EVERY 4 WEEKS
     Route: 042
     Dates: start: 20200512
  20. PRENATAL VITAMINS [MINERALS NOS;VITAMINS NOS] [Concomitant]
     Active Substance: MINERALS\VITAMINS
     Dosage: UNK, ONCE DAILY
     Route: 048
  21. INFLECTRA [Suspect]
     Active Substance: INFLIXIMAB-DYYB
     Dosage: 400 MG, 0, 1, 5 WEEKS AND EVERY 6 WEEKS
     Route: 042
     Dates: start: 20191127
  22. INFLECTRA [Suspect]
     Active Substance: INFLIXIMAB-DYYB
     Dosage: 600 MG, EVERY 4 WEEKS
     Route: 042
     Dates: start: 20200304
  23. INFLECTRA [Suspect]
     Active Substance: INFLIXIMAB-DYYB
     Dosage: 600 MG, EVERY 4 WEEKS
     Route: 042
     Dates: start: 20200414
  24. INFLECTRA [Suspect]
     Active Substance: INFLIXIMAB-DYYB
     Dosage: 600 MG, EVERY 4 WEEKS
     Route: 042
     Dates: start: 20200512
  25. VITAMIN D [Concomitant]
     Active Substance: VITAMIN D NOS
     Dosage: UNK, ONCE DAILY
     Route: 048

REACTIONS (11)
  - Pyrexia [Recovering/Resolving]
  - Weight increased [Unknown]
  - Urticaria [Recovering/Resolving]
  - Mastitis [Recovered/Resolved]
  - Off label use [Unknown]
  - Exposure via breast milk [Unknown]
  - Maternal exposure during pregnancy [Unknown]
  - Oropharyngeal pain [Unknown]
  - Diarrhoea haemorrhagic [Unknown]
  - Condition aggravated [Not Recovered/Not Resolved]
  - Inappropriate schedule of product administration [Unknown]

NARRATIVE: CASE EVENT DATE: 2019
